FAERS Safety Report 17508371 (Version 2)
Quarter: 2020Q1

REPORT INFORMATION
  Report Type: Spontaneous
  Country: US (occurrence: US)
  Receive Date: 20200306
  Receipt Date: 20200319
  Transmission Date: 20200409
  Serious: No
  Sender: FDA-Public Use
  Company Number: US-GW PHARMA-202002USGW00810

PATIENT

DRUGS (4)
  1. BRIVIACT [Concomitant]
     Active Substance: BRIVARACETAM
     Indication: PRODUCT USED FOR UNKNOWN INDICATION
     Dosage: UNK
     Route: 065
     Dates: end: 2020
  2. EPIDIOLEX [Suspect]
     Active Substance: CANNABIDIOL
     Indication: LENNOX-GASTAUT SYNDROME
     Dosage: 300 MILLIGRAM, BID
     Route: 048
     Dates: start: 20191023
  3. BRIVIACT [Concomitant]
     Active Substance: BRIVARACETAM
     Dosage: UNK, INCREASED DOSE
     Route: 065
     Dates: start: 2020
  4. EPIDIOLEX [Suspect]
     Active Substance: CANNABIDIOL
     Indication: EPILEPSY

REACTIONS (2)
  - Atonic seizures [Not Recovered/Not Resolved]
  - Fall [Not Recovered/Not Resolved]

NARRATIVE: CASE EVENT DATE: 202001
